FAERS Safety Report 9665769 (Version 1)
Quarter: 2013Q4

REPORT INFORMATION
  Report Type: Spontaneous
  Country: BE (occurrence: BE)
  Receive Date: 20131104
  Receipt Date: 20131104
  Transmission Date: 20140711
  Serious: Yes (Life-Threatening, Hospitalization, Other)
  Sender: FDA-Public Use
  Company Number: BE-ELI_LILLY_AND_COMPANY-BE201310009704

PATIENT
  Sex: Male
  Weight: 80 kg

DRUGS (4)
  1. EFIENT [Suspect]
     Indication: STENT PLACEMENT
     Dosage: 10 UNK, UNK
     Route: 048
     Dates: start: 20130913, end: 20131025
  2. EFIENT [Suspect]
     Indication: ACUTE CORONARY SYNDROME
  3. ZESTRIL [Concomitant]
     Indication: PRODUCT USED FOR UNKNOWN INDICATION
     Route: 065
  4. ASPIRIN [Concomitant]
     Indication: ANTICOAGULANT THERAPY
     Route: 065

REACTIONS (4)
  - Brain neoplasm [Unknown]
  - Cerebral haemorrhage [Recovering/Resolving]
  - Myocardial infarction [Unknown]
  - Ejection fraction decreased [Unknown]
